FAERS Safety Report 18679822 (Version 28)
Quarter: 2024Q2

REPORT INFORMATION
  Report Type: Other
  Country: DE (occurrence: None)
  Receive Date: 20201230
  Receipt Date: 20240612
  Transmission Date: 20240715
  Serious: Yes (Hospitalization, Other)
  Sender: FDA-Public Use
  Company Number: DE-ROCHE-2633079

PATIENT
  Age: 51 Year
  Sex: Female

DRUGS (16)
  1. OCREVUS [Suspect]
     Active Substance: OCRELIZUMAB
     Indication: Secondary progressive multiple sclerosis
     Route: 042
     Dates: start: 20180201
  2. OCREVUS [Suspect]
     Active Substance: OCRELIZUMAB
     Indication: Relapsing-remitting multiple sclerosis
     Route: 042
     Dates: start: 2019
  3. OCREVUS [Suspect]
     Active Substance: OCRELIZUMAB
     Dosage: MAINTENANCE DOSE
     Route: 042
     Dates: start: 20200720
  4. OCREVUS [Suspect]
     Active Substance: OCRELIZUMAB
     Route: 042
     Dates: start: 20210128
  5. OCREVUS [Suspect]
     Active Substance: OCRELIZUMAB
     Route: 042
     Dates: start: 20210917
  6. COMIRNATY (TOZINAMERAN) [Suspect]
     Active Substance: TOZINAMERAN
     Indication: COVID-19 prophylaxis
     Dosage: FIRST VACCINATION
     Route: 030
     Dates: start: 20210603
  7. COMIRNATY (TOZINAMERAN) [Suspect]
     Active Substance: TOZINAMERAN
     Dosage: SECOND VACCINATION
     Route: 030
     Dates: start: 20210729
  8. PREGABALIN [Suspect]
     Active Substance: PREGABALIN
     Indication: Product used for unknown indication
     Dosage: 2-0-2
     Route: 065
  9. VITAMIN B12 [Concomitant]
     Active Substance: CYANOCOBALAMIN
  10. TIZANIDINE [Concomitant]
     Active Substance: TIZANIDINE
  11. METAMIZOLE [Concomitant]
     Active Substance: METAMIZOLE
  12. VITAMIN D3 [Concomitant]
     Active Substance: CHOLECALCIFEROL
     Indication: Hypocalcaemia
  13. XYLOMETAZOLINE HYDROCHLORIDE [Concomitant]
     Active Substance: XYLOMETAZOLINE HYDROCHLORIDE
  14. DIETARY SUPPLEMENT\HERBALS [Concomitant]
     Active Substance: DIETARY SUPPLEMENT\HERBALS
  15. TIZANIDINE HYDROCHLORIDE [Concomitant]
     Active Substance: TIZANIDINE HYDROCHLORIDE
  16. VITAMIN D3 [Concomitant]
     Active Substance: CHOLECALCIFEROL

REACTIONS (38)
  - Deafness [Recovered/Resolved]
  - Mental disorder [Recovering/Resolving]
  - Suicidal ideation [Recovered/Resolved]
  - Fatigue [Recovered/Resolved]
  - Illness [Recovered/Resolved]
  - Pain in extremity [Recovered/Resolved]
  - Limb discomfort [Not Recovered/Not Resolved]
  - Paraesthesia ear [Recovered/Resolved]
  - Dizziness [Recovered/Resolved]
  - COVID-19 [Recovered/Resolved]
  - Pulmonary pain [Recovered/Resolved]
  - Muscular weakness [Recovered/Resolved]
  - Paraesthesia [Recovered/Resolved]
  - Alopecia [Recovered/Resolved]
  - Chest pain [Recovered/Resolved]
  - Panic attack [Recovered/Resolved]
  - Asthenia [Recovered/Resolved]
  - Emotional disorder [Not Recovered/Not Resolved]
  - Morton^s neuralgia [Unknown]
  - White blood cell count increased [Recovered/Resolved]
  - Genital tract inflammation [Recovered/Resolved]
  - Genital burning sensation [Not Recovered/Not Resolved]
  - Pruritus genital [Not Recovered/Not Resolved]
  - Tonsillitis [Recovered/Resolved]
  - Arthralgia [Recovered/Resolved]
  - Oropharyngeal pain [Recovered/Resolved]
  - Nasal dryness [Not Recovered/Not Resolved]
  - Lacrimation increased [Not Recovered/Not Resolved]
  - Fall [Unknown]
  - Shoulder fracture [Recovered/Resolved]
  - Eructation [Not Recovered/Not Resolved]
  - Visual impairment [Not Recovered/Not Resolved]
  - Muscle spasticity [Not Recovered/Not Resolved]
  - Pain in extremity [Not Recovered/Not Resolved]
  - COVID-19 [Recovering/Resolving]
  - Weight decreased [Not Recovered/Not Resolved]
  - Liver function test increased [Not Recovered/Not Resolved]
  - Vitamin B12 increased [Not Recovered/Not Resolved]

NARRATIVE: CASE EVENT DATE: 20180201
